FAERS Safety Report 16678436 (Version 1)
Quarter: 2019Q3

REPORT INFORMATION
  Report Type: Spontaneous
  Country: US (occurrence: US)
  Receive Date: 20190807
  Receipt Date: 20190807
  Transmission Date: 20191004
  Serious: No
  Sender: FDA-Public Use
  Company Number: US-SHIRE-US201925485

PATIENT
  Sex: Female

DRUGS (1)
  1. CUVITRU [Suspect]
     Active Substance: HUMAN IMMUNOGLOBULIN G
     Indication: PRODUCT USED FOR UNKNOWN INDICATION
     Dosage: 17 GRAM, 1X/WEEK
     Route: 058

REACTIONS (4)
  - Injection site pain [Unknown]
  - Injection site oedema [Unknown]
  - Pain [Unknown]
  - Fatigue [Unknown]
